FAERS Safety Report 6653143-6 (Version None)
Quarter: 2010Q1

REPORT INFORMATION
  Report Type: 
  Country: None (occurrence: None)
  Receive Date: 20100311
  Receipt Date: 20100204
  Transmission Date: 20100710
  Serious: No
  Sender: FDA-Public Use
  Company Number: 006407

PATIENT
  Age: 56 Year
  Sex: Female

DRUGS (2)
  1. ROTIGOTINE [Suspect]
     Dosage: PATIENT'S HUSBAND RECEIVED 6MG PER 24 HOURS TRANSDERMALLY VAGINAL
     Route: 067
  2. LEVODOPA [Concomitant]

REACTIONS (2)
  - ACCIDENTAL EXPOSURE [None]
  - SOMNOLENCE [None]
